FAERS Safety Report 7760852-4 (Version None)
Quarter: 2011Q3

REPORT INFORMATION
  Report Type: 
  Country: None (occurrence: None)
  Receive Date: 20110919
  Receipt Date: 20110915
  Transmission Date: 20111222
  Serious: Yes (Hospitalization)
  Sender: FDA-Public Use
  Company Number: IT-PFIZER INC-2011219138

PATIENT
  Age: 31 Year
  Sex: Female

DRUGS (2)
  1. MEDROL [Suspect]
     Indication: PHARYNGITIS
     Dosage: 4 MG, 1X/DAY
     Route: 048
     Dates: start: 20110723, end: 20110723
  2. CLARITHROMYCIN [Suspect]
     Indication: PHARYNGITIS
     Dosage: 250 MG, 1X/DAY
     Route: 048
     Dates: start: 20110723, end: 20110723

REACTIONS (1)
  - DYSPNOEA [None]
